FAERS Safety Report 24963876 (Version 1)
Quarter: 2025Q1

REPORT INFORMATION
  Report Type: Report from Study
  Country: US (occurrence: US)
  Receive Date: 20250213
  Receipt Date: 20250213
  Transmission Date: 20250408
  Serious: Yes (Other)
  Sender: ROCHE
  Company Number: US-ROCHE-3513564

PATIENT

DRUGS (2)
  1. OCRELIZUMAB [Suspect]
     Active Substance: OCRELIZUMAB
     Indication: Relapsing-remitting multiple sclerosis
     Route: 042
  2. OCRELIZUMAB [Suspect]
     Active Substance: OCRELIZUMAB
     Route: 042

REACTIONS (11)
  - Off label use [Unknown]
  - Throat irritation [Unknown]
  - Pruritus [Unknown]
  - Rash [Unknown]
  - Dyspnoea [Unknown]
  - Angioedema [Unknown]
  - Headache [Unknown]
  - Sneezing [Unknown]
  - Dizziness [Unknown]
  - Nausea [Unknown]
  - Nasal congestion [Unknown]
